FAERS Safety Report 4276742-8 (Version None)
Quarter: 2004Q1

REPORT INFORMATION
  Report Type: 
  Country: None (occurrence: None)
  Receive Date: 20040120
  Receipt Date: 20040120
  Transmission Date: 20041129
  Serious: Yes (Hospitalization)
  Sender: FDA-Public Use
  Company Number: None

PATIENT
  Age: 68 Year
  Sex: Male
  Weight: 88.9 kg

DRUGS (3)
  1. METOPROLOL [Suspect]
  2. HYDROCHLOROTHIAZIDE 25MG TAB [Suspect]
  3. NITROGLYCERIN [Concomitant]

REACTIONS (2)
  - DIZZINESS [None]
  - HYPOTENSION [None]
